FAERS Safety Report 5899086-7 (Version None)
Quarter: 2008Q3

REPORT INFORMATION
  Report Type: 
  Country: None (occurrence: None)
  Receive Date: 20080925
  Receipt Date: 20080915
  Transmission Date: 20090109
  Serious: Yes (Hospitalization, Other)
  Sender: FDA-Public Use
  Company Number: US-ABBOTT-08P-163-0474906-00

PATIENT
  Sex: Female
  Weight: 46.308 kg

DRUGS (13)
  1. HUMIRA [Suspect]
     Indication: RHEUMATOID ARTHRITIS
     Route: 058
     Dates: start: 20040101, end: 20060101
  2. HUMIRA [Suspect]
     Indication: RHEUMATOID ARTHRITIS
     Route: 058
     Dates: start: 20060101
  3. HUMIRA [Suspect]
     Route: 058
     Dates: start: 20080701
  4. RALOXIFENE HCL [Concomitant]
     Indication: BONE DISORDER
     Route: 048
     Dates: start: 20080301
  5. ALPRAZOLAM [Concomitant]
     Indication: INSOMNIA
     Route: 048
  6. ALPRAZOLAM [Concomitant]
     Route: 048
  7. CHLORMEZANONE [Concomitant]
     Indication: INSOMNIA
     Route: 048
  8. ACETAMINOPHEN W/ PROPOXYPHENE HCL [Concomitant]
     Indication: RHEUMATOID ARTHRITIS
     Route: 048
  9. ACETAMINOPHEN W/ PROPOXYPHENE HCL [Concomitant]
  10. DYAZIDE [Concomitant]
     Indication: HYPERTENSION
     Dates: start: 20010101
  11. VIGRAN [Concomitant]
     Indication: VITAMIN SUPPLEMENTATION
     Dosage: WHEN SHE REMEMBERS
     Route: 048
     Dates: start: 20060101
  12. BROMIDE NASAL SPRAY [Concomitant]
     Indication: RHINORRHOEA
     Route: 045
     Dates: start: 20070101
  13. PROPRANOLOL [Concomitant]
     Indication: CORONARY ARTERY DISEASE
     Route: 048
     Dates: start: 20010101

REACTIONS (6)
  - ACCIDENTAL EXPOSURE [None]
  - ARTHRALGIA [None]
  - BLOOD CHOLESTEROL INCREASED [None]
  - GAIT DISTURBANCE [None]
  - GASTROOESOPHAGEAL REFLUX DISEASE [None]
  - RHEUMATOID ARTHRITIS [None]
